FAERS Safety Report 9101174 (Version 1)
Quarter: 2013Q1

REPORT INFORMATION
  Report Type: Spontaneous
  Country: US (occurrence: US)
  Receive Date: 20130218
  Receipt Date: 20130218
  Transmission Date: 20140127
  Serious: No
  Sender: FDA-Public Use
  Company Number: US-BAYER-2013-008099

PATIENT
  Age: 79 Year
  Sex: Female

DRUGS (1)
  1. GADAVIST [Suspect]

REACTIONS (2)
  - Ear discomfort [Recovering/Resolving]
  - Erythema [Recovering/Resolving]
